FAERS Safety Report 4327490-7 (Version None)
Quarter: 2004Q1

REPORT INFORMATION
  Report Type: 
  Country: None (occurrence: None)
  Receive Date: 20040329
  Receipt Date: 20040329
  Transmission Date: 20041129
  Serious: No
  Sender: FDA-Public Use
  Company Number: None

PATIENT
  Age: 32 Year
  Sex: Female
  Weight: 138.8007 kg

DRUGS (1)
  1. LEXAPRO [Suspect]
     Indication: MAJOR DEPRESSION
     Dosage: 20 MG PO QD
     Route: 048
     Dates: start: 20030701, end: 20040301

REACTIONS (1)
  - URTICARIA [None]
